FAERS Safety Report 5089362-2 (Version None)
Quarter: 2006Q3

REPORT INFORMATION
  Report Type: 
  Country: None (occurrence: None)
  Receive Date: 20060822
  Receipt Date: 20060804
  Transmission Date: 20061208
  Serious: Yes (Life-Threatening)
  Sender: FDA-Public Use
  Company Number: JP200608001646

PATIENT
  Age: 58 Year
  Sex: Female

DRUGS (4)
  1. RALOXIFENE HCL [Suspect]
     Indication: OSTEOPOROSIS POSTMENOPAUSAL
     Dosage: 60 MG, DAILY (1/D), ORAL
     Route: 048
     Dates: start: 20050527, end: 20050614
  2. ALFAROL (ALFACALCIDOL) CAPSULE [Concomitant]
  3. KAMISHOUYOUSAN (HERBAL EXTRACTS NOS) [Concomitant]
  4. GRANDAXIN (TOFISOPAM) TABLET [Concomitant]

REACTIONS (5)
  - ABDOMINAL PAIN UPPER [None]
  - ANXIETY [None]
  - CHEST DISCOMFORT [None]
  - HOT FLUSH [None]
  - HYPERHIDROSIS [None]
